FAERS Safety Report 6228042-4 (Version None)
Quarter: 2009Q2

REPORT INFORMATION
  Report Type: 
  Country: None (occurrence: None)
  Receive Date: 20090612
  Receipt Date: 20090608
  Transmission Date: 20091009
  Serious: Yes (Death)
  Sender: FDA-Public Use
  Company Number: US-MERCK-0905USA00394

PATIENT
  Age: 53 Year
  Sex: Male
  Weight: 63 kg

DRUGS (14)
  1. ISENTRESS [Suspect]
     Indication: HIV INFECTION
     Route: 048
  2. ISENTRESS [Suspect]
     Indication: ACQUIRED IMMUNODEFICIENCY SYNDROME
     Route: 048
  3. FLUCONAZOLE [Concomitant]
     Indication: ORAL CANDIDIASIS
     Route: 048
  4. AZITHROMYCIN [Concomitant]
     Indication: OPPORTUNISTIC INFECTION PROPHYLAXIS
     Route: 048
  5. OMEPRAZOLE [Concomitant]
     Route: 048
  6. MORPHINE SULFATE [Concomitant]
     Indication: BREAKTHROUGH PAIN
     Route: 048
     Dates: start: 19950520
  7. MORPHINE SULFATE [Concomitant]
     Indication: NEUROPATHY PERIPHERAL
     Route: 048
     Dates: start: 19950520
  8. MORPHINE SULFATE [Concomitant]
     Route: 048
  9. MORPHINE SULFATE [Concomitant]
     Route: 048
  10. KLONOPIN [Concomitant]
     Route: 048
  11. AMITRIPTYLINE HYDROCHLORIDE [Concomitant]
     Route: 048
  12. BACTRIM DS [Concomitant]
     Indication: ANTIFUNGAL PROPHYLAXIS
     Route: 048
  13. DEPO-TESTOSTERONE [Concomitant]
     Route: 030
  14. CELEXA [Concomitant]
     Route: 048

REACTIONS (4)
  - ACQUIRED IMMUNODEFICIENCY SYNDROME [None]
  - ASCITES [None]
  - HEPATITIS C [None]
  - NEUROPATHY PERIPHERAL [None]
